FAERS Safety Report 5206158-9 (Version None)
Quarter: 2006Q4

REPORT INFORMATION
  Report Type: 
  Country: None (occurrence: None)
  Receive Date: 20061026
  Receipt Date: 20060919
  Transmission Date: 20070319
  Serious: No
  Sender: FDA-Public Use
  Company Number: 2006114427

PATIENT
  Age: 66 Year
  Sex: Male
  Weight: 64.4108 kg

DRUGS (6)
  1. LYRICA [Suspect]
     Indication: DIABETIC NEUROPATHY
     Dosage: 100 MG (50 MG, 2 IN 1 D)
     Dates: start: 20060101
  2. NORVASC [Suspect]
     Indication: HYPERTENSION
     Dosage: 5 MG (5 MG, 1 IN 1 D)
     Dates: start: 20060101
  3. ATACAND [Suspect]
     Indication: HYPERTENSION
     Dosage: 32 MG (32 MG, 1 IN 1 D)
     Dates: start: 20060101, end: 20060901
  4. CLONIDINE [Concomitant]
  5. TENORMIN [Concomitant]
  6. GLUCOPHAGE [Concomitant]

REACTIONS (4)
  - ABNORMAL DREAMS [None]
  - JOINT SWELLING [None]
  - OEDEMA PERIPHERAL [None]
  - WEIGHT INCREASED [None]
